FAERS Safety Report 9835133 (Version 1)
Quarter: 2014Q1

REPORT INFORMATION
  Report Type: Spontaneous
  Country: US (occurrence: US)
  Receive Date: 20140122
  Receipt Date: 20140122
  Transmission Date: 20141002
  Serious: No
  Sender: FDA-Public Use
  Company Number: US-BRISTOL-MYERS SQUIBB COMPANY-19808203

PATIENT
  Age: 81 Year
  Sex: Male
  Weight: 83.9 kg

DRUGS (7)
  1. ELIQUIS [Suspect]
     Indication: ATRIAL FIBRILLATION
  2. ELIQUIS [Suspect]
     Indication: PALPITATIONS
  3. DIPENTUM [Concomitant]
     Dosage: 250MG 3 PILLS QAM AND 3 PILLS QPM
  4. FOLIC ACID [Concomitant]
  5. ATENOLOL [Concomitant]
  6. ICAPS [Concomitant]
  7. FISH OIL [Concomitant]

REACTIONS (3)
  - Drug administration error [Unknown]
  - Palpitations [Unknown]
  - Enuresis [Unknown]
